FAERS Safety Report 25590969 (Version 2)
Quarter: 2025Q3

REPORT INFORMATION
  Report Type: Report from Study
  Country: CA (occurrence: CA)
  Receive Date: 20250722
  Receipt Date: 20250828
  Transmission Date: 20251020
  Serious: Yes (Other)
  Sender: AMGEN
  Company Number: CA-BEH-2025192908

PATIENT
  Age: 83 Year
  Sex: Female

DRUGS (1)
  1. AVACOPAN [Suspect]
     Active Substance: AVACOPAN
     Indication: Vasculitis
     Dosage: 30 MG, BID
     Route: 048
     Dates: start: 20250110, end: 20250630

REACTIONS (10)
  - Gastric ulcer [Unknown]
  - Blood disorder [Unknown]
  - Oesophageal infection [Unknown]
  - Gingival pain [Unknown]
  - Tongue discomfort [Unknown]
  - Fluid retention [Unknown]
  - Insomnia [Unknown]
  - Fatigue [Unknown]
  - Disturbance in attention [Unknown]
  - Off label use [Unknown]

NARRATIVE: CASE EVENT DATE: 20250101
